FAERS Safety Report 7207392-9 (Version None)
Quarter: 2010Q4

REPORT INFORMATION
  Report Type: 
  Country: None (occurrence: None)
  Receive Date: 20101217
  Receipt Date: 20101214
  Transmission Date: 20110411
  Serious: Yes (Disabling)
  Sender: FDA-Public Use
  Company Number: WAES 1012DEU00053

PATIENT
  Age: 79 Year
  Sex: Female
  Weight: 54.8852 kg

DRUGS (2)
  1. FOSAMAX [Suspect]
     Indication: OSTEOPOROSIS POSTMENOPAUSAL
     Dosage: 70 MG/WKY/PO
     Route: 048
     Dates: start: 20100910, end: 20101101
  2. CALCIUM (UNSPECIFIED) (+) VITAMI [Concomitant]

REACTIONS (2)
  - AUTOIMMUNE HEPATITIS [None]
  - PSYCHOMOTOR HYPERACTIVITY [None]
